FAERS Safety Report 10840844 (Version 1)
Quarter: 2015Q1

REPORT INFORMATION
  Report Type: Spontaneous
  Country: US (occurrence: None)
  Receive Date: 20150218
  Receipt Date: 20150218
  Transmission Date: 20150721
  Serious: Yes (Death, Other)
  Sender: FDA-Public Use
  Company Number: US-ZYDUS-006581

PATIENT
  Age: 58 Year
  Sex: Female

DRUGS (4)
  1. VENLAFAXINE [Suspect]
     Active Substance: VENLAFAXINE HYDROCHLORIDE
  2. HYDROXYZINE (HYDROXYZINE) [Suspect]
     Active Substance: HYDROXYZINE HYDROCHLORIDE
  3. DEXTROPROPOXYPHENE [Suspect]
     Active Substance: PROPOXYPHENE HYDROCHLORIDE
  4. FLUOXETINE (FLUOXETINE) [Suspect]
     Active Substance: FLUOXETINE HYDROCHLORIDE

REACTIONS (6)
  - Aspiration [None]
  - Poisoning [None]
  - Completed suicide [None]
  - Overdose [None]
  - Bronchopneumonia [None]
  - Hypersomnia [None]
